FAERS Safety Report 7148123-0 (Version None)
Quarter: 2010Q4

REPORT INFORMATION
  Report Type: 
  Country: None (occurrence: None)
  Receive Date: 20101209
  Receipt Date: 20101129
  Transmission Date: 20110411
  Serious: Yes (Other)
  Sender: FDA-Public Use
  Company Number: AU-PFIZER INC-2010159694

PATIENT
  Sex: Male

DRUGS (2)
  1. XALATAN [Suspect]
     Dosage: 1 GTT, 1X/DAY, RIGHT EYE AT NIGHT
     Route: 047
  2. TIMOPTOL [Concomitant]
     Dosage: BOTH EYES

REACTIONS (2)
  - DRY EYE [None]
  - EYELID PTOSIS [None]
